FAERS Safety Report 4781338-5 (Version None)
Quarter: 2005Q3

REPORT INFORMATION
  Report Type: 
  Country: None (occurrence: None)
  Receive Date: 20050914
  Receipt Date: 20050815
  Transmission Date: 20060218
  Serious: No
  Sender: FDA-Public Use
  Company Number: IND-AE-05-SAN-053

PATIENT
  Age: 76 Year
  Sex: Male
  Weight: 81.6475 kg

DRUGS (7)
  1. SANCTURA [Suspect]
     Indication: HYPERTONIC BLADDER
     Dosage: 20MG BID; ORAL
     Route: 048
     Dates: start: 20050811
  2. PLAVIX [Concomitant]
  3. WARFARIN [Concomitant]
  4. ALLOPURINOL [Concomitant]
  5. ZETIA [Concomitant]
  6. WELCHOL [Concomitant]
  7. SINEMET [Concomitant]

REACTIONS (1)
  - DISTURBANCE IN ATTENTION [None]
